FAERS Safety Report 8878638 (Version 1)
Quarter: 2012Q4

REPORT INFORMATION
  Report Type: 
  Country: US (occurrence: US)
  Receive Date: 20121030
  Receipt Date: 20121030
  Transmission Date: 20130627
  Serious: Yes (Other)
  Sender: FDA-Public Use
  Company Number: US-MPIJNJ-2012-07302

PATIENT
  Sex: Male

DRUGS (3)
  1. VELCADE [Suspect]
     Indication: PRODUCT USED FOR UNKNOWN INDICATION
     Dosage: UNK
     Route: 065
  2. REVLIMID [Suspect]
     Indication: MULTIPLE MYELOMA
     Dosage: 25 mg, UNK
     Route: 048
     Dates: start: 20111108, end: 2012
  3. REVLIMID [Suspect]
     Dosage: 15 UNK, UNK
     Route: 048
     Dates: start: 20121004

REACTIONS (2)
  - Ageusia [Unknown]
  - Paraesthesia [Not Recovered/Not Resolved]
